FAERS Safety Report 9459224 (Version 1)
Quarter: 2013Q3

REPORT INFORMATION
  Report Type: Report from Study
  Country: US (occurrence: US)
  Receive Date: 20130814
  Receipt Date: 20130814
  Transmission Date: 20140515
  Serious: Yes (Hospitalization)
  Sender: FDA-Public Use
  Company Number: US-B.I. PHARMACEUTICALS,INC./RIDGEFIELD-2013-BI-24679GD

PATIENT
  Age: 84 Year
  Sex: Female

DRUGS (14)
  1. PRADAXA [Suspect]
     Dosage: 300 MG
     Route: 048
  2. MULTAQ [Suspect]
  3. ASPIRIN [Suspect]
  4. METOPROLOL TARTRATE [Concomitant]
  5. POTASSIUM [Concomitant]
  6. XANAX [Concomitant]
  7. BENICAR [Concomitant]
  8. SYNTHROID [Concomitant]
  9. DIGOXIN [Concomitant]
  10. LASIX [Concomitant]
  11. NEXIUM [Concomitant]
  12. CRESTOR [Concomitant]
  13. LEXAPRO [Concomitant]
  14. VERAPAMIL [Concomitant]

REACTIONS (3)
  - Haematochezia [Unknown]
  - Melaena [Unknown]
  - Drug interaction [Unknown]
